FAERS Safety Report 7885475-8 (Version None)
Quarter: 2011Q4

REPORT INFORMATION
  Report Type: 
  Country: None (occurrence: None)
  Receive Date: 20111102
  Receipt Date: 20111024
  Transmission Date: 20120403
  Serious: Yes (Other)
  Sender: FDA-Public Use
  Company Number: US-CELGENEUS-163-21880-11102952

PATIENT
  Sex: Male
  Weight: 86.26 kg

DRUGS (9)
  1. VITAMIN D [Concomitant]
     Route: 065
  2. REVLIMID [Suspect]
     Indication: MULTIPLE MYELOMA
     Dosage: 10 MILLIGRAM
     Route: 048
     Dates: start: 20110816
  3. ISORDIL [Concomitant]
     Route: 065
  4. OMEPRAZOLE [Concomitant]
     Route: 065
  5. SINGULAIR [Concomitant]
     Route: 065
  6. TOPROL-XL [Concomitant]
     Route: 065
  7. ZOCOR [Concomitant]
     Route: 065
  8. PLAVIX [Concomitant]
     Route: 065
  9. ZETIA [Concomitant]
     Route: 065

REACTIONS (1)
  - SKIN ULCER [None]
